FAERS Safety Report 11682748 (Version 2)
Quarter: 2015Q4

REPORT INFORMATION
  Report Type: Spontaneous
  Country: US (occurrence: US)
  Receive Date: 20151029
  Receipt Date: 20151125
  Transmission Date: 20160304
  Serious: Yes (Life-Threatening, Hospitalization, Disabling, Other)
  Sender: FDA-Public Use
  Company Number: US-SHIRE-US201513172

PATIENT
  Age: 56 Year
  Sex: Female
  Weight: 68.27 kg

DRUGS (10)
  1. WELLBUTRIN [Concomitant]
     Active Substance: BUPROPION HYDROCHLORIDE
     Indication: DEPRESSION
     Dosage: 300 MG, UNKNOWN
     Route: 065
     Dates: start: 2009
  2. KLONOPIN [Concomitant]
     Active Substance: CLONAZEPAM
     Indication: SLEEP DISORDER
     Dosage: 1 MG, OTHER (HS)
     Route: 065
     Dates: start: 20120514
  3. VYVANSE [Suspect]
     Active Substance: LISDEXAMFETAMINE DIMESYLATE
     Dosage: 40 MG, UNKNOWN
     Route: 048
     Dates: end: 20150721
  4. ZIAC                               /00821801/ [Concomitant]
     Active Substance: CEFIXIME
     Dosage: UNK (2.5/6.25), UNKNOWN
     Route: 065
  5. ZIAC                               /00821801/ [Concomitant]
     Active Substance: CEFIXIME
     Indication: PRODUCT USED FOR UNKNOWN INDICATION
     Dosage: (5/6.5) UNK, UNKNOWN
     Route: 065
     Dates: end: 2015
  6. CITALOPRAM [Concomitant]
     Active Substance: CITALOPRAM HYDROBROMIDE
     Indication: PRODUCT USED FOR UNKNOWN INDICATION
     Dosage: UNK, UNKNOWN
     Route: 065
     Dates: start: 201204, end: 201412
  7. VYVANSE [Suspect]
     Active Substance: LISDEXAMFETAMINE DIMESYLATE
     Indication: ATTENTION DEFICIT/HYPERACTIVITY DISORDER
     Dosage: 50 MG, 1X/DAY:QD
     Route: 048
  8. VYVANSE [Suspect]
     Active Substance: LISDEXAMFETAMINE DIMESYLATE
     Dosage: 40 MG, 1X/DAY:QD
     Route: 048
     Dates: start: 20140624
  9. ZIAC                               /00821801/ [Concomitant]
     Active Substance: CEFIXIME
     Dosage: UNK (1/2 TABLET) UNKNOWN
     Route: 065
  10. WELLBUTRIN [Concomitant]
     Active Substance: BUPROPION HYDROCHLORIDE
     Dosage: UNK

REACTIONS (13)
  - Oedema peripheral [Unknown]
  - Grief reaction [Unknown]
  - Stress [Recovered/Resolved]
  - Viral infection [Unknown]
  - Gastrooesophageal reflux disease [Unknown]
  - Nausea [Unknown]
  - Vomiting [Unknown]
  - Cardiomyopathy [Not Recovered/Not Resolved]
  - Pleural effusion [Unknown]
  - Severe acute respiratory syndrome [Recovered/Resolved]
  - Tearfulness [Recovered/Resolved]
  - Costochondritis [Unknown]
  - Cardiac failure congestive [Unknown]

NARRATIVE: CASE EVENT DATE: 2014
